FAERS Safety Report 7175873-2 (Version None)
Quarter: 2010Q4

REPORT INFORMATION
  Report Type: 
  Country: None (occurrence: None)
  Receive Date: 20101220
  Receipt Date: 20100422
  Transmission Date: 20110411
  Serious: Yes (Hospitalization, Other)
  Sender: FDA-Public Use
  Company Number: US-AMGEN-QUU404378

PATIENT

DRUGS (1)
  1. ENBREL [Suspect]
     Indication: RHEUMATOID ARTHRITIS
     Dosage: 50 MG, QWK
     Route: 058
     Dates: start: 20020501

REACTIONS (9)
  - ACNE [None]
  - APPENDICITIS PERFORATED [None]
  - ARTHRALGIA [None]
  - BACK PAIN [None]
  - EPICONDYLITIS [None]
  - INCISION SITE INFECTION [None]
  - PRURITUS [None]
  - SKIN CANCER [None]
  - SKIN DEPIGMENTATION [None]
